FAERS Safety Report 6201370-4 (Version None)
Quarter: 2009Q2

REPORT INFORMATION
  Report Type: 
  Country: None (occurrence: None)
  Receive Date: 20090526
  Receipt Date: 20090519
  Transmission Date: 20091009
  Serious: Yes (Death, Other)
  Sender: FDA-Public Use
  Company Number: PHHY2009JP17506

PATIENT
  Age: 64 Year
  Sex: Male
  Weight: 51 kg

DRUGS (7)
  1. ZOLEDRONIC ACID [Suspect]
     Indication: METASTASES TO BONE
     Dosage: 4 MG
  2. METHOTREXATE [Concomitant]
     Dosage: 100MG/M2 / ONCE A WEEK
     Route: 042
  3. METHOTREXATE [Concomitant]
     Dosage: UNK
  4. FLUOROURACIL [Concomitant]
     Dosage: 600 MG/M2 / ONCE A WEEK
     Route: 042
  5. FLUOROURACIL [Concomitant]
     Dosage: UNK
  6. PACLITAXEL [Concomitant]
     Dosage: 80 MG/M2 ONCE A WEEK
  7. HEPARIN [Concomitant]
     Dosage: UNK
     Dates: start: 20070302

REACTIONS (10)
  - ANOREXIA [None]
  - BACK PAIN [None]
  - BLOOD CALCITONIN INCREASED [None]
  - BLOOD PARATHYROID HORMONE INCREASED [None]
  - DEATH [None]
  - DISSEMINATED INTRAVASCULAR COAGULATION [None]
  - ELECTROCARDIOGRAM QT PROLONGED [None]
  - FATIGUE [None]
  - GENERAL PHYSICAL HEALTH DETERIORATION [None]
  - HYPOCALCAEMIA [None]
